FAERS Safety Report 12788463 (Version 2)
Quarter: 2016Q4

REPORT INFORMATION
  Report Type: Report from Study
  Country: US (occurrence: US)
  Receive Date: 20160928
  Receipt Date: 20161103
  Transmission Date: 20170207
  Serious: Yes (Other)
  Sender: FDA-Public Use
  Company Number: PHEH2016US024073

PATIENT
  Sex: Female

DRUGS (1)
  1. COSENTYX [Suspect]
     Active Substance: SECUKINUMAB
     Indication: PSORIASIS
     Dosage: 300 MG, QW
     Route: 058
     Dates: start: 20151015

REACTIONS (4)
  - Fatigue [Unknown]
  - Nasopharyngitis [Recovered/Resolved]
  - Clostridium test positive [Unknown]
  - Cough [Not Recovered/Not Resolved]
